FAERS Safety Report 5486733-7 (Version None)
Quarter: 2007Q4

REPORT INFORMATION
  Report Type: 
  Country: None (occurrence: None)
  Receive Date: 20071016
  Receipt Date: 20071015
  Transmission Date: 20080405
  Serious: Yes (Hospitalization)
  Sender: FDA-Public Use
  Company Number: A0687136A

PATIENT
  Age: 44 Year
  Sex: Female

DRUGS (5)
  1. ALLI [Suspect]
     Indication: WEIGHT LOSS DIET
     Route: 048
     Dates: start: 20070601, end: 20070926
  2. DEPAKOTE [Suspect]
     Indication: MIGRAINE
     Dosage: 1000MG UNKNOWN
     Route: 048
     Dates: start: 20070801
  3. TOPAMAX [Concomitant]
     Indication: MIGRAINE
  4. EFFEXOR [Concomitant]
     Indication: DEPRESSION
  5. LITHIUM [Concomitant]
     Indication: BIPOLAR DISORDER
     Dates: start: 20040101

REACTIONS (9)
  - ABDOMINAL PAIN UPPER [None]
  - ALOPECIA [None]
  - DYSPNOEA [None]
  - GALLBLADDER PAIN [None]
  - INCISION SITE PAIN [None]
  - PANCREATITIS [None]
  - POST PROCEDURAL SWELLING [None]
  - PROCEDURAL NAUSEA [None]
  - WEIGHT INCREASED [None]
